FAERS Safety Report 5092293-5 (Version None)
Quarter: 2006Q3

REPORT INFORMATION
  Report Type: 
  Country: None (occurrence: None)
  Receive Date: 20060825
  Receipt Date: 20060807
  Transmission Date: 20061208
  Serious: Yes (Other)
  Sender: FDA-Public Use
  Company Number: US200608001471

PATIENT
  Sex: Female

DRUGS (3)
  1. EVISTA [Suspect]
     Indication: OSTEOPOROSIS PROPHYLAXIS
     Dosage: ORAL
     Route: 048
  2. CALCIUM (CALCIUM) [Concomitant]
  3. VANCOMYCIN [Concomitant]

REACTIONS (3)
  - DRUG HYPERSENSITIVITY [None]
  - HOT FLUSH [None]
  - KNEE OPERATION [None]
